FAERS Safety Report 9447204 (Version 5)
Quarter: 2014Q4

REPORT INFORMATION
  Report Type: Report from Study
  Country: JP (occurrence: JP)
  Receive Date: 20130807
  Receipt Date: 20141215
  Transmission Date: 20150529
  Serious: Yes (Death, Life-Threatening, Hospitalization, Other)
  Sender: FDA-Public Use
  Company Number: JP-009507513-1308JPN002131

PATIENT
  Age: 50 Year
  Sex: Male

DRUGS (4)
  1. NERISONA [Concomitant]
     Active Substance: DIFLUCORTOLONE VALERATE
     Indication: MYCOSIS FUNGOIDES
     Dosage: DAILY DOSAGE UNKNOWN; FORMULATION OIT
     Route: 061
     Dates: end: 20130725
  2. LOCOID [Concomitant]
     Active Substance: HYDROCORTISONE BUTYRATE
     Indication: MYCOSIS FUNGOIDES
     Dosage: DAILY DOSAGE UNKNOWN;FOMULATION OIT
     Route: 061
     Dates: end: 20130725
  3. DERMOVATE [Concomitant]
     Active Substance: CLOBETASOL
     Indication: MYCOSIS FUNGOIDES
     Dosage: DAILY DOSE UNKNOWN; FORMULATION OIT
     Route: 061
     Dates: end: 20130725
  4. ZOLINZA [Suspect]
     Active Substance: VORINOSTAT
     Indication: MYCOSIS FUNGOIDES
     Dosage: 400 MG, QD
     Route: 048
     Dates: start: 20130322, end: 20130728

REACTIONS (16)
  - Oedema peripheral [Recovering/Resolving]
  - Skin exfoliation [Not Recovered/Not Resolved]
  - Death [Fatal]
  - Platelet count decreased [Recovering/Resolving]
  - Chills [Not Recovered/Not Resolved]
  - Pancytopenia [Not Recovered/Not Resolved]
  - Dermatitis exfoliative [Not Recovered/Not Resolved]
  - Pyrexia [Not Recovered/Not Resolved]
  - Pneumonia [Not Recovered/Not Resolved]
  - Fatigue [Not Recovered/Not Resolved]
  - Disseminated intravascular coagulation [Fatal]
  - Hepatic function abnormal [Not Recovered/Not Resolved]
  - Decreased appetite [Not Recovered/Not Resolved]
  - Bacterial infection [Fatal]
  - Sepsis [Fatal]
  - Platelet count decreased [Not Recovered/Not Resolved]

NARRATIVE: CASE EVENT DATE: 20130405
